FAERS Safety Report 6643404-9 (Version None)
Quarter: 2010Q1

REPORT INFORMATION
  Report Type: 
  Country: None (occurrence: None)
  Receive Date: 20100319
  Receipt Date: 20100305
  Transmission Date: 20100710
  Serious: Yes (Other)
  Sender: FDA-Public Use
  Company Number: CA-GENENTECH-299406

PATIENT
  Sex: Male
  Weight: 66.7 kg

DRUGS (2)
  1. XOLAIR [Suspect]
     Indication: ASTHMA
     Dosage: 300 MG, 1/MONTH
     Route: 058
     Dates: start: 20090123
  2. XOLAIR [Suspect]
     Dosage: UNK
     Dates: start: 20100305

REACTIONS (1)
  - PANCREAS INFECTION [None]
